FAERS Safety Report 8028792-3 (Version None)
Quarter: 2012Q1

REPORT INFORMATION
  Report Type: 
  Country: None (occurrence: None)
  Receive Date: 20120106
  Receipt Date: 20120104
  Transmission Date: 20120608
  Serious: Yes (Hospitalization)
  Sender: FDA-Public Use
  Company Number: ES-MERCK-1201ESP00001

PATIENT
  Age: 55 Year
  Sex: Male

DRUGS (1)
  1. SINGULAIR [Suspect]
     Route: 048
     Dates: start: 20010101, end: 20110101

REACTIONS (1)
  - ALLERGIC GRANULOMATOUS ANGIITIS [None]
